FAERS Safety Report 5492925-3 (Version None)
Quarter: 2007Q4

REPORT INFORMATION
  Report Type: 
  Country: None (occurrence: None)
  Receive Date: 20071016
  Receipt Date: 20071007
  Transmission Date: 20080405
  Serious: Yes (Other)
  Sender: FDA-Public Use
  Company Number: CHPA2007CA10535

PATIENT

DRUGS (1)
  1. NEOCITRAN WARMING SYRUP COLD + FLU(NCH)(PARACETAMOL, DEXTROMETHORPHAN, [Suspect]

REACTIONS (1)
  - ANXIETY [None]
